FAERS Safety Report 4405180-X (Version None)
Quarter: 2004Q3

REPORT INFORMATION
  Report Type: 
  Country: None (occurrence: None)
  Receive Date: 20040722
  Receipt Date: 20040722
  Transmission Date: 20050211
  Serious: Yes (Other)
  Sender: FDA-Public Use
  Company Number: None

PATIENT
  Age: 22 Year
  Sex: Female
  Weight: 88.4514 kg

DRUGS (1)
  1. PAXIL [Suspect]
     Indication: ANXIETY
     Dosage: 40 MG 1 PER DAY ORAL
     Route: 048

REACTIONS (7)
  - ABNORMAL BEHAVIOUR [None]
  - DIZZINESS [None]
  - DYSGEUSIA [None]
  - FEAR [None]
  - HALLUCINATIONS, MIXED [None]
  - TENSION [None]
  - VERTIGO [None]
